FAERS Safety Report 16648873 (Version 2)
Quarter: 2019Q3

REPORT INFORMATION
  Report Type: Spontaneous
  Country: BR (occurrence: BR)
  Receive Date: 20190730
  Receipt Date: 20190730
  Transmission Date: 20191004
  Serious: Yes (Other)
  Sender: FDA-Public Use
  Company Number: PHHY2019BR158756

PATIENT
  Age: 56 Year
  Sex: Female
  Weight: 120 kg

DRUGS (15)
  1. CIMELIDE [Concomitant]
     Active Substance: NIMESULIDE
     Indication: PRODUCT USED FOR UNKNOWN INDICATION
     Dosage: 1 DF, QD
     Route: 048
  2. LACRILAX [Concomitant]
     Indication: EYE LUBRICATION THERAPY
     Dosage: UNK UNK, QD (ONE DROP IN EACH EYE)
     Route: 047
  3. FLUXTAR [Concomitant]
     Indication: HYPOTONIA
     Dosage: 1 DF, QD
     Route: 048
  4. BUDESONIDE. [Concomitant]
     Active Substance: BUDESONIDE
     Indication: DYSPNOEA
     Dosage: UNK UNK, QD (TWO SPRINKLED IN EACH NOSTRIL)
     Route: 055
  5. CANDESARTAN SANDOZ [Suspect]
     Active Substance: CANDESARTAN
     Indication: HYPERTENSION
     Dosage: 1 DF, QD
     Route: 048
  6. BISOPROLOL HEMIFUMARATE [Concomitant]
     Active Substance: BISOPROLOL FUMARATE
     Indication: PRODUCT USED FOR UNKNOWN INDICATION
     Dosage: 1 DF, QD
     Route: 048
  7. VASTAREL [Concomitant]
     Active Substance: TRIMETAZIDINE DIHYDROCHLORIDE
     Indication: PRODUCT USED FOR UNKNOWN INDICATION
     Dosage: 1 DF, BID
     Route: 048
  8. AMILORIDE HCL/HYDROCHLOORTHIAZIDE MERCK [Concomitant]
     Indication: DIURETIC THERAPY
     Dosage: 1 DF, QD
     Route: 048
  9. AMLODIPINE [Suspect]
     Active Substance: AMLODIPINE BESYLATE
     Indication: PRODUCT USED FOR UNKNOWN INDICATION
     Dosage: 1 DF, BID
     Route: 065
  10. FLUXTAR [Concomitant]
     Indication: INSOMNIA
  11. ASPIRIN. [Concomitant]
     Active Substance: ASPIRIN
     Indication: ANTICOAGULANT THERAPY
     Dosage: 1 DF, QD
     Route: 048
  12. PANTOPRAZOLE [Concomitant]
     Active Substance: PANTOPRAZOLE
     Indication: GASTROINTESTINAL DISORDER PROPHYLAXIS
     Dosage: 1 DF, QD
     Route: 048
  13. ANCORON [Concomitant]
     Active Substance: AMIODARONE HYDROCHLORIDE
     Indication: CARDIAC DISORDER
     Dosage: 1 DF, QD
     Route: 048
  14. ROSUVASTATINA CALCICA [Suspect]
     Active Substance: ROSUVASTATIN CALCIUM
     Indication: BLOOD CHOLESTEROL INCREASED
     Dosage: 1 DF, BID
     Route: 048
  15. ALLOPURINOL. [Concomitant]
     Active Substance: ALLOPURINOL
     Indication: BLOOD URIC ACID INCREASED
     Dosage: 1 DF, QD
     Route: 048

REACTIONS (8)
  - Condition aggravated [Unknown]
  - Arthropod bite [Recovered/Resolved]
  - Wheezing [Not Recovered/Not Resolved]
  - Peau d^orange [Recovered/Resolved]
  - Skin mass [Recovered/Resolved with Sequelae]
  - Vision blurred [Unknown]
  - Dyspnoea [Not Recovered/Not Resolved]
  - Choking [Not Recovered/Not Resolved]

NARRATIVE: CASE EVENT DATE: 201905
